FAERS Safety Report 18711597 (Version 1)
Quarter: 2021Q1

REPORT INFORMATION
  Report Type: Other
  Country: US (occurrence: US)
  Receive Date: 20210107
  Receipt Date: 20210107
  Transmission Date: 20210419
  Serious: Yes (Death, Hospitalization, Other)
  Sender: FDA-Public Use
  Company Number: US-APPCO PHARMA LLC-2104058

PATIENT
  Age: 8 Decade
  Sex: Male

DRUGS (1)
  1. HYDROXYCHLOROQUINE SULFATE. [Suspect]
     Active Substance: HYDROXYCHLOROQUINE SULFATE
     Indication: COVID-19
     Route: 065

REACTIONS (5)
  - Renal phospholipidosis [Fatal]
  - Condition aggravated [Fatal]
  - Off label use [Unknown]
  - Electrocardiogram QT prolonged [Unknown]
  - Acute kidney injury [Fatal]
